FAERS Safety Report 9672279 (Version 3)
Quarter: 2013Q4

REPORT INFORMATION
  Report Type: Spontaneous
  Country: US (occurrence: US)
  Receive Date: 20131106
  Receipt Date: 20131118
  Transmission Date: 20140711
  Serious: Yes (Life-Threatening, Hospitalization, Other)
  Sender: FDA-Public Use
  Company Number: US-BAXTER-2013BAX043465

PATIENT
  Age: 78 Year
  Sex: Female
  Weight: 50.39 kg

DRUGS (4)
  1. 0.9% SODIUM CHLORIDE INJECTION [Suspect]
     Indication: CATHETER MANAGEMENT
     Dosage: 8-10 CC FLUSH
     Route: 042
     Dates: start: 20131028, end: 20131028
  2. FLUDEOXYGLUCOSE (18F) [Suspect]
     Indication: POSITRON EMISSION TOMOGRAM
     Dosage: 14.0 MCI
     Route: 042
     Dates: start: 20131028, end: 20131028
  3. FLUDEOXYGLUCOSE (18F) [Suspect]
     Indication: SCAN
  4. FLUDEOXYGLUCOSE (18F) [Suspect]
     Indication: BREAST CANCER

REACTIONS (4)
  - Incoherent [Recovered/Resolved]
  - Hyperhidrosis [Recovered/Resolved]
  - Unresponsive to stimuli [Recovered/Resolved]
  - Blood glucose decreased [Unknown]
